FAERS Safety Report 21055904 (Version 1)
Quarter: 2022Q3

REPORT INFORMATION
  Report Type: Spontaneous
  Country: PL (occurrence: PL)
  Receive Date: 20220708
  Receipt Date: 20220708
  Transmission Date: 20221027
  Serious: Yes (Hospitalization, Other)
  Sender: FDA-Public Use
  Company Number: PL-Accord-267388

PATIENT
  Age: 71 Year
  Sex: Female
  Weight: 60 kg

DRUGS (8)
  1. ENBREL [Suspect]
     Active Substance: ETANERCEPT
     Indication: Product used for unknown indication
     Dosage: 50 MG, WEEKLY
     Route: 058
     Dates: start: 20161130
  2. METHOTREXATE [Suspect]
     Active Substance: METHOTREXATE
     Indication: Product used for unknown indication
     Dosage: 15 MG, WEEKLY
     Route: 048
     Dates: start: 20150519
  3. FOLIC ACID [Concomitant]
     Active Substance: FOLIC ACID
     Dosage: UNK
     Dates: start: 201501
  4. VITAMIN D3 [Concomitant]
     Active Substance: CHOLECALCIFEROL
     Dosage: UNK
     Dates: start: 20150519
  5. SULODEXIDE [Concomitant]
     Active Substance: SULODEXIDE
     Dosage: UNK
     Dates: start: 201501
  6. NIMESULIDE [Concomitant]
     Active Substance: NIMESULIDE
     Dosage: UNK
     Dates: start: 20150519
  7. PERINDOPRIL [Concomitant]
     Active Substance: PERINDOPRIL
     Dosage: UNK
     Dates: start: 2010
  8. ROSUVASTATIN CALCIUM [Concomitant]
     Active Substance: ROSUVASTATIN CALCIUM
     Dosage: UNK
     Dates: start: 2010

REACTIONS (6)
  - Complicated appendicitis [Recovered/Resolved]
  - Emphysema [Not Recovered/Not Resolved]
  - Arteriosclerosis [Not Recovered/Not Resolved]
  - Hepatic cyst [Not Recovered/Not Resolved]
  - Spinal osteoarthritis [Not Recovered/Not Resolved]
  - Diverticulum intestinal [Not Recovered/Not Resolved]

NARRATIVE: CASE EVENT DATE: 20190319
